FAERS Safety Report 15488382 (Version 1)
Quarter: 2018Q4

REPORT INFORMATION
  Report Type: Spontaneous
  Country: US (occurrence: US)
  Receive Date: 20181011
  Receipt Date: 20181011
  Transmission Date: 20190205
  Serious: No
  Sender: FDA-Public Use
  Company Number: US-ABBVIE-18K-163-2484338-00

PATIENT
  Age: 87 Year
  Sex: Female

DRUGS (4)
  1. VENCLEXTA [Suspect]
     Active Substance: VENETOCLAX
     Indication: NON-HODGKIN^S LYMPHOMA
     Dosage: WEEK 1
     Route: 048
     Dates: start: 20180813, end: 20180819
  2. VENCLEXTA [Suspect]
     Active Substance: VENETOCLAX
     Dosage: WEEK 4
     Route: 048
     Dates: start: 20180903, end: 20180909
  3. VENCLEXTA [Suspect]
     Active Substance: VENETOCLAX
     Indication: NON-HODGKIN^S LYMPHOMA
     Dosage: WEEK 3
     Route: 048
     Dates: start: 20180827, end: 20180902
  4. VENCLEXTA [Suspect]
     Active Substance: VENETOCLAX
     Indication: PROPHYLACTIC CHEMOTHERAPY
     Dosage: DAY 8
     Route: 048
     Dates: start: 20180820, end: 20180826

REACTIONS (1)
  - Intentional product use issue [Unknown]

NARRATIVE: CASE EVENT DATE: 20180813
